FAERS Safety Report 7655513-6 (Version None)
Quarter: 2011Q3

REPORT INFORMATION
  Report Type: 
  Country: None (occurrence: None)
  Receive Date: 20110728
  Receipt Date: 20110720
  Transmission Date: 20111222
  Serious: Yes (Hospitalization)
  Sender: FDA-Public Use
  Company Number: 2011SP025786

PATIENT
  Age: 14 Year
  Sex: Male

DRUGS (10)
  1. ATROPINE SULFATE [Suspect]
     Indication: PRODUCT USED FOR UNKNOWN INDICATION
     Dosage: 0.75 MG, ONCE, IV
     Route: 042
     Dates: start: 20110520, end: 20110520
  2. INTRASTIGMINA (NEOSTIGIMINE METISULFATE) [Suspect]
     Indication: NEUROMUSCULAR BLOCKADE REVERSAL
     Dosage: 1 MG; ONCE; IV
     Route: 042
     Dates: start: 20110520, end: 20110520
  3. ACETAMINOPHEN [Suspect]
     Indication: ANALGESIC THERAPY
     Dosage: 250 MG, ONCE, IV
     Route: 042
     Dates: start: 20110520, end: 20110520
  4. NORCURON [Suspect]
     Indication: ANAESTHESIA PROCEDURE
     Dosage: 6 MG, ONCE, IV
     Route: 042
     Dates: start: 20110520, end: 20110520
  5. FENTANYL CITRATE [Suspect]
     Indication: ANAESTHESIA PROCEDURE
     Dosage: 2 MG, ONCE, IV
     Route: 042
     Dates: start: 20110520, end: 20110520
  6. PROPOFOL [Suspect]
     Indication: ANAESTHESIA PROCEDURE
     Dosage: 100 MG ONCE; IV
     Route: 042
     Dates: start: 20110520, end: 20110520
  7. CEFAZOLIN [Concomitant]
  8. OMEPRAZOLE [Suspect]
     Indication: PROPHYLAXIS AGAINST GASTROINTESTINAL ULCER
     Dosage: 20 MG, ONCE, IV
     Route: 042
     Dates: start: 20110520, end: 20110520
  9. KETOROLAC TROMETHAMINE [Concomitant]
  10. ENOXAPARIN [Concomitant]

REACTIONS (2)
  - RASH [None]
  - LIP OEDEMA [None]
